FAERS Safety Report 18006903 (Version 1)
Quarter: 2020Q3

REPORT INFORMATION
  Report Type: Spontaneous
  Country: GB (occurrence: GB)
  Receive Date: 20200710
  Receipt Date: 20200710
  Transmission Date: 20201103
  Serious: Yes (Other)
  Sender: FDA-Public Use
  Company Number: GB-ACCORD-189829

PATIENT
  Age: 49 Year
  Sex: Male
  Weight: 97 kg

DRUGS (2)
  1. ESOMEPRAZOLE/ESOMEPRAZOLE MAGNESIUM/ESOMEPRAZOLE SODIUM [Suspect]
     Active Substance: ESOMEPRAZOLE
     Indication: ABDOMINAL PAIN
     Route: 048
     Dates: start: 20200415, end: 20200610
  2. OMEPRAZOLE. [Concomitant]
     Active Substance: OMEPRAZOLE

REACTIONS (3)
  - Insomnia [Not Recovered/Not Resolved]
  - Tinnitus [Not Recovered/Not Resolved]
  - Product label issue [Unknown]

NARRATIVE: CASE EVENT DATE: 20200415
